FAERS Safety Report 6052635-0 (Version None)
Quarter: 2009Q1

REPORT INFORMATION
  Report Type: 
  Country: None (occurrence: None)
  Receive Date: 20090127
  Receipt Date: 20090119
  Transmission Date: 20090719
  Serious: Yes (Other)
  Sender: FDA-Public Use
  Company Number: JP-JNJFOC-20081206494

PATIENT
  Sex: Male
  Weight: 52 kg

DRUGS (8)
  1. ITRIZOLE [Suspect]
     Indication: SINUSITIS
     Dosage: 50 MG, 4 CAPSULES,
     Route: 048
  2. AMBISOME [Suspect]
     Indication: SINUSITIS
     Route: 041
  3. FUNGUARD [Concomitant]
     Indication: SINUSITIS
     Route: 041
  4. APLACE [Concomitant]
     Indication: GASTRIC ULCER
     Route: 048
  5. FAMOGAST [Concomitant]
     Indication: GASTRIC ULCER
     Route: 048
  6. MAGLAX [Concomitant]
     Indication: CONSTIPATION
     Route: 048
  7. VOLTAREN [Concomitant]
     Indication: HEADACHE
     Route: 054
  8. BASEN [Concomitant]
     Indication: DIABETES MELLITUS
     Route: 048

REACTIONS (3)
  - DIARRHOEA [None]
  - RENAL IMPAIRMENT [None]
  - VISUAL ACUITY REDUCED [None]
